FAERS Safety Report 26109285 (Version 1)
Quarter: 2025Q4

REPORT INFORMATION
  Report Type: Report from Study
  Country: US (occurrence: US)
  Receive Date: 20251201
  Receipt Date: 20251201
  Transmission Date: 20260118
  Serious: No
  Sender: MALLINCKRODT
  Company Number: US-MALLINCKRODT-MNK202507445

PATIENT
  Age: 53 Year
  Sex: Female
  Weight: 170 kg

DRUGS (1)
  1. CORTICOTROPIN [Suspect]
     Active Substance: CORTICOTROPIN
     Indication: Keratitis interstitial
     Dosage: 80 UNITS
     Route: 058
     Dates: start: 20251118

REACTIONS (4)
  - Gastrooesophageal reflux disease [Unknown]
  - Condition aggravated [Unknown]
  - Insomnia [Unknown]
  - Contraindicated product administered [Unknown]

NARRATIVE: CASE EVENT DATE: 20251101
